FAERS Safety Report 17764016 (Version 10)
Quarter: 2021Q3

REPORT INFORMATION
  Report Type: Report from Study
  Country: None (occurrence: NL)
  Receive Date: 20200510
  Receipt Date: 20210916
  Transmission Date: 20211014
  Serious: Yes (Hospitalization, Other)
  Sender: FDA-Public Use
  Company Number: NL-ABBVIE-19S-114-2656461-00

PATIENT
  Age: 68 Year
  Sex: Male

DRUGS (8)
  1. DUODOPA [Suspect]
     Active Substance: CARBIDOPA\LEVODOPA
     Dosage: MD: 9.0, CD: 3.4, ED: 4.0
     Route: 050
  2. DUODOPA [Suspect]
     Active Substance: CARBIDOPA\LEVODOPA
     Dosage: MD: 9.0ML, CD: 3.6ML/H, ED: 4.5ML
     Route: 050
  3. DUODOPA [Suspect]
     Active Substance: CARBIDOPA\LEVODOPA
     Dosage: MD: 9.0ML, CD: 3.3ML/H, ED: 3.0ML
     Route: 050
  4. MOVICOLON [Concomitant]
     Active Substance: POLYETHYLENE GLYCOL 3350\POTASSIUM CHLORIDE\SODIUM BICARBONATE\SODIUM CHLORIDE
     Indication: ABNORMAL FAECES
  5. DUODOPA [Suspect]
     Active Substance: CARBIDOPA\LEVODOPA
     Dosage: MD: 9.0ML, CD: 3.6ML/H, ED: 4.0ML; 16 HOUR ADMINISTRATION
     Route: 050
     Dates: start: 20150630
  6. DUODOPA [Suspect]
     Active Substance: CARBIDOPA\LEVODOPA
     Dosage: MD: 9.0, CD: 3.6, ED: 4.5; 16 HOUR ADMINISTRATION
     Route: 050
     Dates: start: 20200513
  7. DUODOPA [Suspect]
     Active Substance: CARBIDOPA\LEVODOPA
     Dosage: MD: 9.0ML, CD: 3.6ML/H, ED: 4.5ML
     Route: 050
  8. DUODOPA [Suspect]
     Active Substance: CARBIDOPA\LEVODOPA
     Indication: PARKINSON^S DISEASE
     Dosage: MD: 9.0, CD: 3.4, ED: 4.0 16 HOUR ADMINISTRATION
     Route: 050
     Dates: start: 20150630

REACTIONS (26)
  - Amnesia [Not Recovered/Not Resolved]
  - Cerebrovascular accident [Not Recovered/Not Resolved]
  - Stress [Unknown]
  - Abnormal dreams [Recovered/Resolved]
  - Syncope [Recovered/Resolved]
  - Device difficult to use [Unknown]
  - Fatigue [Not Recovered/Not Resolved]
  - Abdominal pain upper [Recovering/Resolving]
  - Hyperkinesia [Not Recovered/Not Resolved]
  - Muscle rigidity [Not Recovered/Not Resolved]
  - Malaise [Recovered/Resolved]
  - Dysarthria [Recovered/Resolved]
  - Device difficult to use [Recovered/Resolved]
  - Mental impairment [Not Recovered/Not Resolved]
  - Appetite disorder [Recovering/Resolving]
  - Apraxia [Recovered/Resolved]
  - Dyschezia [Recovered/Resolved]
  - Dyskinesia [Not Recovered/Not Resolved]
  - On and off phenomenon [Recovered/Resolved]
  - Cerebral infarction [Not Recovered/Not Resolved]
  - Transient ischaemic attack [Recovered/Resolved]
  - Cognitive disorder [Not Recovered/Not Resolved]
  - Bowel movement irregularity [Recovered/Resolved]
  - Hypophagia [Recovering/Resolving]
  - On and off phenomenon [Recovering/Resolving]
  - Hallucination [Not Recovered/Not Resolved]

NARRATIVE: CASE EVENT DATE: 2020
